FAERS Safety Report 7973830-7 (Version None)
Quarter: 2011Q4

REPORT INFORMATION
  Report Type: 
  Country: None (occurrence: None)
  Receive Date: 20111213
  Receipt Date: 20111201
  Transmission Date: 20120403
  Serious: Yes (Death, Other)
  Sender: FDA-Public Use
  Company Number: CA-ELI_LILLY_AND_COMPANY-CA201111004223

PATIENT
  Sex: Male

DRUGS (7)
  1. ZYPREXA [Suspect]
     Dosage: 15 MG, UNK
  2. ZYPREXA [Suspect]
     Dosage: 25 MG, UNK
  3. KEMADRIN [Concomitant]
  4. ZYPREXA [Suspect]
     Indication: SCHIZOPHRENIA
     Dosage: 5 MG, UNK
     Dates: start: 19990101
  5. ZYPREXA [Suspect]
     Dosage: 20 MG, UNK
  6. RISPERIDONE [Concomitant]
  7. FLUANXOL [Concomitant]

REACTIONS (6)
  - LEFT VENTRICULAR HYPERTROPHY [None]
  - PULMONARY OEDEMA [None]
  - PULMONARY EMBOLISM [None]
  - OVERDOSE [None]
  - WEIGHT INCREASED [None]
  - HYPERGLYCAEMIA [None]
